FAERS Safety Report 5166998-1 (Version None)
Quarter: 2006Q4

REPORT INFORMATION
  Report Type: 
  Country: None (occurrence: None)
  Receive Date: 20061207
  Receipt Date: 20061122
  Transmission Date: 20070319
  Serious: Yes (Hospitalization, Other)
  Sender: FDA-Public Use
  Company Number: JP-BRISTOL-MYERS SQUIBB COMPANY-13597638

PATIENT
  Age: 89 Year
  Sex: Female

DRUGS (6)
  1. SINEMET [Suspect]
     Indication: PARKINSON'S DISEASE
     Dosage: 12-OCT-2006: THERAPY STOPPED; 24-OCT-2006 RESTARTED AT 100 MG,31-OCT-2006 INCREASED TO 200 MG.
     Route: 048
     Dates: start: 20050311
  2. ARICEPT [Concomitant]
     Dates: start: 20050311, end: 20061012
  3. BUFFERIN [Concomitant]
     Dates: start: 20050311, end: 20061012
  4. PRIMPERAN TAB [Concomitant]
     Dates: start: 20050311
  5. RANITIDINE HCL [Concomitant]
     Dates: start: 20050311, end: 20061012
  6. VITAMIN E NICOTINATE [Concomitant]
     Dates: start: 20050311, end: 20061012

REACTIONS (1)
  - BLOOD CREATINE PHOSPHOKINASE INCREASED [None]
